FAERS Safety Report 5464823-2 (Version None)
Quarter: 2007Q3

REPORT INFORMATION
  Report Type: 
  Country: None (occurrence: None)
  Receive Date: 20070921
  Receipt Date: 20070910
  Transmission Date: 20080115
  Serious: Yes (Hospitalization)
  Sender: FDA-Public Use
  Company Number: JP-PFIZER INC-2007075778

PATIENT
  Age: 9 Year
  Sex: Female

DRUGS (6)
  1. ZITHROMAC [Suspect]
     Indication: PNEUMONIA MYCOPLASMAL
     Route: 048
     Dates: start: 20070904, end: 20070906
  2. MUCODYNE [Concomitant]
     Route: 048
     Dates: start: 20070904, end: 20070908
  3. ASVERIN [Concomitant]
     Dates: start: 20070904, end: 20070908
  4. HOKUNALIN [Concomitant]
     Route: 062
     Dates: start: 20070904, end: 20070908
  5. MONTELUKAST SODIUM [Concomitant]
     Dates: start: 20070904, end: 20070908
  6. CALONAL [Concomitant]
     Route: 048
     Dates: start: 20070904, end: 20070908

REACTIONS (1)
  - RHABDOMYOLYSIS [None]
